FAERS Safety Report 14350112 (Version 2)
Quarter: 2018Q1

REPORT INFORMATION
  Report Type: Spontaneous
  Country: BR (occurrence: BR)
  Receive Date: 20180104
  Receipt Date: 20180216
  Transmission Date: 20180509
  Serious: Yes (Hospitalization)
  Sender: FDA-Public Use
  Company Number: BR-009507513-1712BRA013871

PATIENT
  Age: 35 Year
  Sex: Female
  Weight: 55 kg

DRUGS (2)
  1. NUVARING [Suspect]
     Active Substance: ETHINYL ESTRADIOL\ETONOGESTREL
     Indication: CONTRACEPTION
     Dosage: 3 WEEKS WITH THE VAGINAL RING AND 1 WEEK FOR FREE CONTRACEPTIVE INTERVAL
     Route: 067
     Dates: start: 20171204
  2. NUVARING [Suspect]
     Active Substance: ETHINYL ESTRADIOL\ETONOGESTREL
     Dosage: 3 WEEKS WITH THE VAGINAL RING AND 1 WEEK FOR FREE CONTRACEPTIVE INTERVAL
     Route: 067
     Dates: start: 201604, end: 201711

REACTIONS (2)
  - Menstrual disorder [Recovered/Resolved]
  - Breast prosthesis implantation [Recovered/Resolved]

NARRATIVE: CASE EVENT DATE: 20171110
